FAERS Safety Report 7710490-4 (Version None)
Quarter: 2011Q3

REPORT INFORMATION
  Report Type: 
  Country: None (occurrence: None)
  Receive Date: 20110825
  Receipt Date: 20110825
  Transmission Date: 20111222
  Serious: Yes (Hospitalization)
  Sender: FDA-Public Use
  Company Number: IE-AMGEN-IRLNI2011042908

PATIENT
  Sex: Male

DRUGS (3)
  1. PEGFILGRASTIM [Suspect]
     Indication: MULTIPLE MYELOMA
  2. LENALIDOMIDE [Concomitant]
     Dosage: 20 MG, QD
     Route: 048
     Dates: start: 20110707
  3. SEPTRA [Concomitant]
     Dosage: 960 MG, UNK
     Route: 048
     Dates: start: 20110304

REACTIONS (2)
  - URINARY TRACT INFECTION [None]
  - URINARY RETENTION [None]
